FAERS Safety Report 11636293 (Version 1)
Quarter: 2015Q4

REPORT INFORMATION
  Report Type: Spontaneous
  Country: US (occurrence: US)
  Receive Date: 20151016
  Receipt Date: 20151016
  Transmission Date: 20160304
  Serious: No
  Sender: FDA-Public Use
  Company Number: US-BAYER-2015-445651

PATIENT
  Age: 52 Year
  Sex: Female
  Weight: 58.95 kg

DRUGS (1)
  1. CHILDREN CLARITIN ALLERGY [Suspect]
     Active Substance: LORATADINE
     Indication: OTORRHOEA
     Route: 048

REACTIONS (1)
  - Off label use [None]
